FAERS Safety Report 7555946-2 (Version None)
Quarter: 2011Q2

REPORT INFORMATION
  Report Type: 
  Country: None (occurrence: None)
  Receive Date: 20110618
  Receipt Date: 20110604
  Transmission Date: 20111010
  Serious: Yes (Other)
  Sender: FDA-Public Use
  Company Number: SG-BAYER-2011-048221

PATIENT
  Age: 28 Year
  Sex: Female

DRUGS (5)
  1. ACETAMINOPHEN [Suspect]
  2. AMOXICILLIN [Suspect]
  3. ASPIRIN [Suspect]
  4. CHLORPHENIRAMINE MALEATE [Concomitant]
  5. DICLOFENAC SODIUM [Suspect]

REACTIONS (1)
  - PERIORBITAL OEDEMA [None]
